FAERS Safety Report 8478296-9 (Version None)
Quarter: 2012Q2

REPORT INFORMATION
  Report Type: 
  Country: None (occurrence: None)
  Receive Date: 20120629
  Receipt Date: 20120620
  Transmission Date: 20120825
  Serious: Yes (Other)
  Sender: FDA-Public Use
  Company Number: US-JNJFOC-20120610973

PATIENT
  Sex: Female

DRUGS (2)
  1. REMICADE [Suspect]
     Route: 042
  2. REMICADE [Suspect]
     Indication: PRODUCT USED FOR UNKNOWN INDICATION
     Route: 042
     Dates: start: 20090101

REACTIONS (6)
  - HEART RATE INCREASED [None]
  - DYSPNOEA [None]
  - NAUSEA [None]
  - DIZZINESS [None]
  - ABASIA [None]
  - ASTHENIA [None]
